FAERS Safety Report 8866406 (Version 1)
Quarter: 2012Q4

REPORT INFORMATION
  Report Type: 
  Country: JP (occurrence: JP)
  Receive Date: 20121025
  Receipt Date: 20121025
  Transmission Date: 20130627
  Serious: Yes (Hospitalization)
  Sender: FDA-Public Use
  Company Number: JP-009507513-1210JPN009045

PATIENT
  Age: 82 Year
  Sex: Female

DRUGS (17)
  1. JANUVIA [Suspect]
     Indication: DIABETES MELLITUS
     Dosage: 100 mg, qd
     Route: 048
     Dates: start: 201209
  2. JANUVIA [Suspect]
     Dosage: 75 mg, qd
     Route: 048
     Dates: start: 201206, end: 201209
  3. JANUVIA [Suspect]
     Indication: DIABETES MELLITUS
     Dosage: 50 mg, qd
     Route: 048
     Dates: start: 201205, end: 201206
  4. JANUVIA [Suspect]
     Indication: DIABETES MELLITUS
     Dosage: 75 mg, qd
     Route: 048
     Dates: start: 201206, end: 201209
  5. SIGMART [Concomitant]
     Dosage: 5 mg, tid
     Route: 048
  6. NAUZELIN [Concomitant]
     Dosage: 10 mg, tid
     Route: 065
  7. GASLON [Concomitant]
     Dosage: 2 mg, bid
     Route: 048
  8. AMARYL [Concomitant]
     Indication: DIABETES MELLITUS
     Dosage: 1 mg, qd
     Route: 048
     Dates: start: 201205
  9. VASOLATOR [Concomitant]
     Dosage: UNK
     Route: 062
  10. PARIET [Concomitant]
     Dosage: 10 mg, qd
     Route: 048
  11. LANIRAPID [Concomitant]
     Dosage: 0.1 mg, qd
     Route: 048
  12. MICAMLO [Concomitant]
     Dosage: UNK
     Route: 048
  13. TENORMIN [Concomitant]
     Dosage: 50 mg, qd
     Route: 048
  14. LUPRAC [Concomitant]
     Dosage: 4 mg, qd
     Route: 048
  15. BUP-4 [Concomitant]
     Dosage: 10 mg, qd
     Route: 048
  16. LOXONIN [Concomitant]
     Dosage: 60 mg, tid
     Route: 048
  17. ZEFLOPTO [Concomitant]
     Dosage: 5 mg, tid
     Route: 048

REACTIONS (2)
  - Diabetes mellitus inadequate control [Not Recovered/Not Resolved]
  - Rash [Not Recovered/Not Resolved]
